FAERS Safety Report 4837411-6 (Version None)
Quarter: 2005Q4

REPORT INFORMATION
  Report Type: 
  Country: None (occurrence: None)
  Receive Date: 20051123
  Receipt Date: 20051123
  Transmission Date: 20060501
  Serious: Yes (Hospitalization)
  Sender: FDA-Public Use
  Company Number: None

PATIENT
  Age: 53 Year
  Sex: Male
  Weight: 72 kg

DRUGS (1)
  1. ABELCET [Suspect]
     Indication: PNEUMONIA FUNGAL
     Dosage: 375 MG IV QD
     Route: 042

REACTIONS (2)
  - CHILLS [None]
  - INFUSION RELATED REACTION [None]
